FAERS Safety Report 9159494 (Version 1)
Quarter: 2013Q1

REPORT INFORMATION
  Report Type: Spontaneous
  Country: US (occurrence: None)
  Receive Date: 20130312
  Receipt Date: 20130312
  Transmission Date: 20140127
  Serious: Yes (Other)
  Sender: FDA-Public Use
  Company Number: None

PATIENT
  Age: 48 Year
  Sex: Female
  Weight: 71.22 kg

DRUGS (2)
  1. LYRICA [Suspect]
     Indication: FIBROMYALGIA
     Route: 048
     Dates: start: 20130310, end: 20130310
  2. LYRICA [Suspect]
     Indication: PAIN
     Route: 048
     Dates: start: 20130310, end: 20130310

REACTIONS (3)
  - Hyperpyrexia [None]
  - Headache [None]
  - Influenza like illness [None]
